FAERS Safety Report 8452610-2 (Version None)
Quarter: 2012Q2

REPORT INFORMATION
  Report Type: 
  Country: None (occurrence: None)
  Receive Date: 20120620
  Receipt Date: 20120420
  Transmission Date: 20120825
  Serious: No
  Sender: FDA-Public Use
  Company Number: US-VERTEX PHARMACEUTICALS INC.-AE-2012-005681

PATIENT
  Sex: Female

DRUGS (6)
  1. INCIVEK [Suspect]
     Indication: HEPATITIS C
     Route: 048
     Dates: start: 20110501, end: 20110801
  2. PEGASYS [Concomitant]
     Indication: HEPATITIS C
     Dates: start: 20110501, end: 20110801
  3. PEGASYS [Concomitant]
     Dates: start: 20120301
  4. RIBAVIRIN [Concomitant]
     Indication: HEPATITIS C
     Dates: start: 20110501, end: 20110801
  5. RIBAVIRIN [Concomitant]
     Dates: start: 20120301
  6. INCIVEK [Suspect]
     Route: 048
     Dates: start: 20120301

REACTIONS (1)
  - RASH [None]
